FAERS Safety Report 13902693 (Version 9)
Quarter: 2018Q2

REPORT INFORMATION
  Report Type: Report from Study
  Country: None (occurrence: US)
  Receive Date: 20170824
  Receipt Date: 20180416
  Transmission Date: 20180711
  Serious: Yes (Hospitalization, Other)
  Sender: FDA-Public Use
  Company Number: US-ABBVIE-17K-163-2077944-00

PATIENT
  Age: 57 Year
  Sex: Female
  Weight: 105.78 kg

DRUGS (8)
  1. BENICAR [Concomitant]
     Active Substance: OLMESARTAN MEDOXOMIL
     Indication: HYPERTENSION
  2. MICROZIDE [Concomitant]
     Active Substance: HYDROCHLOROTHIAZIDE
     Indication: PRODUCT USED FOR UNKNOWN INDICATION
  3. EFFEXOR [Suspect]
     Active Substance: VENLAFAXINE HYDROCHLORIDE
     Indication: PRODUCT USED FOR UNKNOWN INDICATION
     Route: 065
     Dates: end: 2017
  4. MICROZIDE [Concomitant]
     Active Substance: HYDROCHLOROTHIAZIDE
     Indication: HYPERTENSION
  5. HUMIRA [Suspect]
     Active Substance: ADALIMUMAB
     Indication: RHEUMATOID ARTHRITIS
     Route: 058
     Dates: start: 20170710, end: 201712
  6. HUMIRA [Suspect]
     Active Substance: ADALIMUMAB
     Indication: CROHN^S DISEASE
     Route: 058
     Dates: start: 20180104
  7. METOPROLOL TARTRATE. [Concomitant]
     Active Substance: METOPROLOL TARTRATE
     Indication: HYPERTENSION
  8. CARDURA [Concomitant]
     Active Substance: DOXAZOSIN MESYLATE
     Indication: HYPERTENSION

REACTIONS (33)
  - Malaise [Recovered/Resolved]
  - Skin cancer [Recovered/Resolved]
  - Pain [Unknown]
  - Arthropathy [Unknown]
  - Nasopharyngitis [Unknown]
  - Fall [Unknown]
  - Blood pressure increased [Unknown]
  - Coronary artery occlusion [Unknown]
  - Pain in extremity [Unknown]
  - Oedema peripheral [Unknown]
  - Device issue [Unknown]
  - Adrenal neoplasm [Unknown]
  - Influenza [Recovered/Resolved]
  - Chest pain [Recovered/Resolved]
  - Skin cancer [Unknown]
  - Drug effect incomplete [Unknown]
  - Blood pressure increased [Recovered/Resolved]
  - Incorrect dose administered [Unknown]
  - Malaise [Unknown]
  - Ephelides [Unknown]
  - Hypertension [Unknown]
  - Impaired healing [Unknown]
  - Malignant melanoma [Unknown]
  - Blood glucose decreased [Unknown]
  - Fatigue [Unknown]
  - Spinal column injury [Unknown]
  - Nausea [Recovered/Resolved]
  - Urinary incontinence [Unknown]
  - Head injury [Unknown]
  - Renal neoplasm [Unknown]
  - Urinary tract obstruction [Unknown]
  - Heart rate decreased [Unknown]
  - Blood pressure increased [Unknown]

NARRATIVE: CASE EVENT DATE: 2017
